FAERS Safety Report 13241200 (Version 2)
Quarter: 2017Q1

REPORT INFORMATION
  Report Type: Report from Study
  Country: US (occurrence: US)
  Receive Date: 20170216
  Receipt Date: 20170222
  Transmission Date: 20170428
  Serious: Yes (Hospitalization)
  Sender: FDA-Public Use
  Company Number: US-EXELIXIS-CABO-17008229

PATIENT
  Sex: Male

DRUGS (2)
  1. VITAMINS [Concomitant]
     Active Substance: VITAMINS
  2. CABOMETYX [Suspect]
     Active Substance: CABOZANTINIB S-MALATE
     Indication: RENAL CANCER
     Dosage: 60 MG, Q MONDAY, WEDNESDAY, FRIDAY
     Route: 048
     Dates: start: 20160624

REACTIONS (1)
  - Pneumonia [Unknown]
